FAERS Safety Report 9461618 (Version 1)
Quarter: 2013Q3

REPORT INFORMATION
  Report Type: Spontaneous
  Country: IT (occurrence: IT)
  Receive Date: 20130816
  Receipt Date: 20130816
  Transmission Date: 20140515
  Serious: Yes (Other)
  Sender: FDA-Public Use
  Company Number: IT-EISAI INC-E3810-06601-SPO-IT

PATIENT
  Age: 44 Year
  Sex: Male

DRUGS (5)
  1. PARIET (RABEPRAZOLE) [Suspect]
     Indication: GASTROINTESTINAL DISORDER
     Route: 048
     Dates: start: 20130429, end: 20130802
  2. REYATAZ [Suspect]
     Indication: ACUTE HIV INFECTION
     Route: 048
     Dates: start: 20130729
  3. KIVEXA [Concomitant]
     Indication: PRODUCT USED FOR UNKNOWN INDICATION
     Dosage: 300MG + 600MG
     Route: 065
  4. NORVIR [Concomitant]
     Indication: PRODUCT USED FOR UNKNOWN INDICATION
     Dosage: UNKNOWN
     Route: 065
  5. DELTACORTENE [Concomitant]
     Indication: PRODUCT USED FOR UNKNOWN INDICATION
     Dosage: UNKNOWN
     Route: 065

REACTIONS (1)
  - Tongue oedema [Unknown]
